FAERS Safety Report 5246865-5 (Version None)
Quarter: 2007Q1

REPORT INFORMATION
  Report Type: 
  Country: None (occurrence: None)
  Receive Date: 20070226
  Receipt Date: 20070216
  Transmission Date: 20070707
  Serious: Yes (Other)
  Sender: FDA-Public Use
  Company Number: ZA-PFIZER INC-2007013075

PATIENT
  Sex: Male

DRUGS (3)
  1. EPANUTIN [Suspect]
     Route: 048
  2. DILANTIN [Suspect]
  3. EPILIM [Concomitant]
     Route: 048

REACTIONS (2)
  - CONVULSION [None]
  - DRUG INEFFECTIVE [None]
